FAERS Safety Report 4608301-9 (Version None)
Quarter: 2005Q2

REPORT INFORMATION
  Report Type: 
  Country: None (occurrence: None)
  Receive Date: 20050303
  Receipt Date: 20041222
  Transmission Date: 20051028
  Serious: No
  Sender: FDA-Public Use
  Company Number: 2004BI002153

PATIENT
  Age: 70 Year
  Sex: Male

DRUGS (1)
  1. AMEVIVE [Suspect]
     Indication: PSORIASIS
     Dosage: 15 MG;QW;IM
     Route: 030
     Dates: start: 20041215, end: 20041215

REACTIONS (6)
  - BLOOD CHLORIDE INCREASED [None]
  - BLOOD GLUCOSE INCREASED [None]
  - BLOOD POTASSIUM INCREASED [None]
  - CD4 LYMPHOCYTES DECREASED [None]
  - CD4 LYMPHOCYTES INCREASED [None]
  - WHITE BLOOD CELL COUNT INCREASED [None]
